FAERS Safety Report 8887389 (Version 1)
Quarter: 2012Q4

REPORT INFORMATION
  Report Type: 
  Country: US (occurrence: US)
  Receive Date: 20121101
  Receipt Date: 20121101
  Transmission Date: 20130627
  Serious: Yes (Hospitalization)
  Sender: FDA-Public Use
  Company Number: CHPA2012US022576

PATIENT
  Age: 64 Year
  Sex: Female

DRUGS (2)
  1. BENEFIBER W/ WHEAT DEXTRIN [Suspect]
     Indication: NUTRITIONAL SUPPORT
     Dosage: 3 TSP, EVERY NOW and THEN
     Route: 048
     Dates: end: 2011
  2. BENEFIBER W/ WHEAT DEXTRIN [Suspect]
     Dosage: 2 HEAPING TABLESPOONS, A DAY
     Route: 048

REACTIONS (4)
  - Large intestinal ulcer [Recovered/Resolved]
  - Constipation [Recovered/Resolved]
  - Overdose [Unknown]
  - Incorrect dose administered [Unknown]
